FAERS Safety Report 5320202-X (Version None)
Quarter: 2007Q2

REPORT INFORMATION
  Report Type: 
  Country: None (occurrence: None)
  Receive Date: 20070509
  Receipt Date: 20070501
  Transmission Date: 20071010
  Serious: Yes (Hospitalization)
  Sender: FDA-Public Use
  Company Number: A0649920A

PATIENT
  Age: 82 Year
  Sex: Female

DRUGS (11)
  1. LAPATINIB [Suspect]
     Indication: BREAST CANCER METASTATIC
     Dosage: 1000MG PER DAY
     Route: 048
     Dates: start: 20070404, end: 20070411
  2. CARBOPLATIN [Suspect]
     Indication: BREAST CANCER METASTATIC
     Route: 042
     Dates: start: 20070404, end: 20070411
  3. PACLITAXEL [Suspect]
     Indication: BREAST CANCER METASTATIC
     Route: 042
     Dates: start: 20070404, end: 20070411
  4. LEXAPRO [Concomitant]
     Dosage: 10MG PER DAY
     Route: 048
  5. EVISTA [Concomitant]
     Dosage: 60MG PER DAY
     Route: 048
  6. HYDROCODONE [Concomitant]
     Dosage: 5MG AS REQUIRED
  7. DETROL LA [Concomitant]
     Dosage: 4MG PER DAY
     Route: 048
  8. SIMVASTATIN [Concomitant]
     Dosage: 20MG PER DAY
     Route: 048
  9. ASPIRIN [Concomitant]
  10. VITAMINS [Concomitant]
  11. GLUCOSAMINE [Concomitant]

REACTIONS (7)
  - ANAEMIA [None]
  - BRONCHITIS [None]
  - COUGH [None]
  - DIARRHOEA [None]
  - FEBRILE NEUTROPENIA [None]
  - ILEUS [None]
  - REGURGITATION [None]
